FAERS Safety Report 11459559 (Version 1)
Quarter: 2015Q3

REPORT INFORMATION
  Report Type: Spontaneous
  Country: US (occurrence: US)
  Receive Date: 20150904
  Receipt Date: 20150904
  Transmission Date: 20151125
  Serious: No
  Sender: FDA-Public Use
  Company Number: US-TARO-2015TAR00351

PATIENT
  Age: 76 Year
  Sex: Female
  Weight: 68.27 kg

DRUGS (3)
  1. WARFARIN SODIUM TABLETS USP 1MG [Suspect]
     Active Substance: WARFARIN SODIUM
     Indication: ARRHYTHMIA
     Dosage: 3 MG, 1X/DAY
     Route: 048
     Dates: start: 201410
  2. ATORVASTATIN [Concomitant]
     Active Substance: ATORVASTATIN
     Dosage: 10 MG, 1X/DAY
     Dates: start: 2013
  3. PROPAFENONE SR [Concomitant]
     Dosage: 320 MG, 1X/DAY
     Dates: start: 2013

REACTIONS (9)
  - Upper-airway cough syndrome [Not Recovered/Not Resolved]
  - Productive cough [Not Recovered/Not Resolved]
  - Lymphadenopathy [Unknown]
  - Sinus congestion [Not Recovered/Not Resolved]
  - Lower respiratory tract infection [Unknown]
  - Salivary gland pain [Unknown]
  - Oropharyngeal pain [Not Recovered/Not Resolved]
  - Reaction to drug excipients [Unknown]
  - Nasopharyngitis [Unknown]

NARRATIVE: CASE EVENT DATE: 201410
